FAERS Safety Report 24356033 (Version 1)
Quarter: 2024Q3

REPORT INFORMATION
  Report Type: Spontaneous
  Country: US (occurrence: US)
  Receive Date: 20240924
  Receipt Date: 20240924
  Transmission Date: 20241016
  Serious: Yes (Death)
  Sender: JOHNSON AND JOHNSON
  Company Number: US-JNJFOC-20240952287

PATIENT
  Age: 70 Year
  Sex: Female

DRUGS (1)
  1. ACETAMINOPHEN [Suspect]
     Active Substance: ACETAMINOPHEN
     Indication: Product used for unknown indication
     Route: 065

REACTIONS (10)
  - Toxicity to various agents [Fatal]
  - Anion gap [Fatal]
  - Coma [Fatal]
  - Depressed level of consciousness [Fatal]
  - Gastrointestinal haemorrhage [Fatal]
  - Hepatotoxicity [Fatal]
  - Metabolic acidosis [Fatal]
  - Electrocardiogram QRS complex prolonged [Fatal]
  - Hypoglycaemia [Fatal]
  - Hypotension [Fatal]
